FAERS Safety Report 6433723-3 (Version None)
Quarter: 2009Q4

REPORT INFORMATION
  Report Type: 
  Country: None (occurrence: None)
  Receive Date: 20091110
  Receipt Date: 20091029
  Transmission Date: 20100525
  Serious: Yes (Other)
  Sender: FDA-Public Use
  Company Number: US-BAYER-200937913NA

PATIENT
  Sex: Female

DRUGS (1)
  1. YAZ [Suspect]
     Indication: DRUG USE FOR UNKNOWN INDICATION
     Dates: start: 20060101

REACTIONS (1)
  - DEEP VEIN THROMBOSIS [None]
